FAERS Safety Report 4742275-5 (Version None)
Quarter: 2005Q3

REPORT INFORMATION
  Report Type: 
  Country: None (occurrence: None)
  Receive Date: 20050811
  Receipt Date: 20050331
  Transmission Date: 20060218
  Serious: Yes (Disabling)
  Sender: FDA-Public Use
  Company Number: US-GLAXOSMITHKLINE-A0552198A

PATIENT
  Age: 35 Year
  Sex: Female
  Weight: 65.9 kg

DRUGS (2)
  1. PAXIL CR [Suspect]
     Indication: DEPRESSION
     Dosage: 25MG PER DAY
     Route: 048
     Dates: end: 20050318
  2. NO CONCURRENT MEDICATION [Concomitant]

REACTIONS (2)
  - DIZZINESS [None]
  - DRUG EXPOSURE DURING PREGNANCY [None]
